FAERS Safety Report 20688176 (Version 2)
Quarter: 2022Q2

REPORT INFORMATION
  Report Type: Spontaneous
  Country: US (occurrence: None)
  Receive Date: 20220408
  Receipt Date: 20220428
  Transmission Date: 20220721
  Serious: Yes (Other)
  Sender: FDA-Public Use
  Company Number: US-ROCHE-3064012

PATIENT
  Sex: Male

DRUGS (1)
  1. OCREVUS [Suspect]
     Active Substance: OCRELIZUMAB
     Indication: Multiple sclerosis
     Dosage: 300MG/ 10ML?ADDITIONAL TREATMENT DATE: 12/AUG/2021
     Route: 042
     Dates: start: 20210812

REACTIONS (3)
  - Multiple sclerosis relapse [Unknown]
  - Vision blurred [Recovered/Resolved]
  - Tension [Unknown]
